FAERS Safety Report 4423283-0 (Version None)
Quarter: 2004Q3

REPORT INFORMATION
  Report Type: 
  Country: None (occurrence: None)
  Receive Date: 20040810
  Receipt Date: 20040810
  Transmission Date: 20050211
  Serious: Yes (Disabling)
  Sender: FDA-Public Use
  Company Number: None

PATIENT
  Age: 5 Year
  Sex: Male
  Weight: 28.5766 kg

DRUGS (3)
  1. SEROQUEL [Suspect]
     Indication: AFFECTIVE DISORDER
     Dosage: 200 MG DAY ORAL
     Route: 048
     Dates: start: 20030301, end: 20031220
  2. SEROQUEL [Suspect]
     Indication: ANXIETY
     Dosage: 200 MG DAY ORAL
     Route: 048
     Dates: start: 20030301, end: 20031220
  3. SEROQUEL [Suspect]
     Indication: ATTENTION DEFICIT/HYPERACTIVITY DISORDER
     Dosage: 200 MG DAY ORAL
     Route: 048
     Dates: start: 20030301, end: 20031220

REACTIONS (4)
  - LEARNING DISABILITY [None]
  - MENTAL IMPAIRMENT [None]
  - SPEECH DISORDER DEVELOPMENTAL [None]
  - VISUAL DISTURBANCE [None]
